FAERS Safety Report 15935844 (Version 1)
Quarter: 2019Q1

REPORT INFORMATION
  Report Type: Spontaneous
  Country: US (occurrence: US)
  Receive Date: 20190116
  Receipt Date: 20190116
  Transmission Date: 20190417
  Serious: No
  Sender: FDA-Public Use
  Company Number: None

PATIENT
  Age: 68 Year
  Sex: Male

DRUGS (4)
  1. ZYTIGA [Suspect]
     Active Substance: ABIRATERONE ACETATE
     Indication: OVARIAN CANCER
     Route: 048
     Dates: start: 20190107
  2. SIMVASTATIN. [Concomitant]
     Active Substance: SIMVASTATIN
  3. BENAZEPRIL [Concomitant]
     Active Substance: BENAZEPRIL HYDROCHLORIDE
  4. IBUPROFEN. [Concomitant]
     Active Substance: IBUPROFEN

REACTIONS (5)
  - Fatigue [None]
  - Hot flush [None]
  - Insomnia [None]
  - Muscular weakness [None]
  - Night sweats [None]

NARRATIVE: CASE EVENT DATE: 20190107
